FAERS Safety Report 4825660-2 (Version None)
Quarter: 2005Q4

REPORT INFORMATION
  Report Type: 
  Country: None (occurrence: None)
  Receive Date: 20051109
  Receipt Date: 20051101
  Transmission Date: 20060501
  Serious: Yes (Death)
  Sender: FDA-Public Use
  Company Number: 163-20785-05100048

PATIENT
  Age: 78 Year
  Sex: Female

DRUGS (1)
  1. THALOMID [Suspect]
     Indication: PARAPROTEINAEMIA
     Dosage: 200 MG, DIALY, ORAL
     Route: 048
     Dates: start: 20050809, end: 20050901

REACTIONS (1)
  - ASPIRATION [None]
